FAERS Safety Report 23178383 (Version 1)
Quarter: 2023Q4

REPORT INFORMATION
  Report Type: Spontaneous
  Country: US (occurrence: None)
  Receive Date: 20231113
  Receipt Date: 20231113
  Transmission Date: 20240109
  Serious: Yes (Other)
  Sender: FDA-Public Use
  Company Number: None

PATIENT
  Sex: Female

DRUGS (13)
  1. GLATOPA [Suspect]
     Active Substance: GLATIRAMER ACETATE
     Indication: Multiple sclerosis
     Dosage: FREQUENCY : DAILY;?
     Route: 058
     Dates: start: 20211026
  2. GLATOPA [Suspect]
     Active Substance: GLATIRAMER ACETATE
     Dosage: FREQUENCY : DAILY;?
     Route: 058
  3. DEXTROAMPHET SACCHARAT, AMPHET ASPARTATE, DEXTROAMPHET SULFATE AND AMP [Concomitant]
     Active Substance: AMPHETAMINE ASPARTATE\AMPHETAMINE ASPARTATE MONOHYDRATE\AMPHETAMINE SULFATE\DEXTROAMPHETAMINE SACCHA
  4. BACLOFEN [Concomitant]
     Active Substance: BACLOFEN
  5. CHOLESTYRAM [Concomitant]
  6. GLATIRAMER [Concomitant]
     Active Substance: GLATIRAMER
  7. ACETAMINOPHEN\HYDROCODONE [Concomitant]
     Active Substance: ACETAMINOPHEN\HYDROCODONE
  8. OXCARBAZEPIN [Concomitant]
  9. PREDNISOLONE [Concomitant]
  10. PREDNISONE [Concomitant]
  11. PROMETHAZINE [Concomitant]
  12. SPIRONOLACTONE [Concomitant]
     Active Substance: SPIRONOLACTONE
  13. TIZANIDINE [Concomitant]

REACTIONS (4)
  - Fall [None]
  - Haematoma [None]
  - Swelling face [None]
  - Migraine [None]
